FAERS Safety Report 10504132 (Version 1)
Quarter: 2014Q4

REPORT INFORMATION
  Report Type: Spontaneous
  Country: US (occurrence: US)
  Receive Date: 20141008
  Receipt Date: 20141008
  Transmission Date: 20150528
  Serious: No
  Sender: FDA-Public Use
  Company Number: US-BEH-2014040205

PATIENT
  Sex: Female
  Weight: 114 kg

DRUGS (1)
  1. IVIG [Suspect]
     Active Substance: HUMAN IMMUNOGLOBULIN G
     Route: 042

REACTIONS (2)
  - Pruritus generalised [Unknown]
  - Neck pain [Unknown]
